FAERS Safety Report 18529156 (Version 1)
Quarter: 2020Q4

REPORT INFORMATION
  Report Type: Spontaneous
  Country: US (occurrence: US)
  Receive Date: 20201120
  Receipt Date: 20201120
  Transmission Date: 20210114
  Serious: Yes (Other)
  Sender: FDA-Public Use
  Company Number: US-009507513-2011USA011887

PATIENT
  Sex: Male
  Weight: 105.67 kg

DRUGS (55)
  1. ATRIPLA [Suspect]
     Active Substance: EFAVIRENZ\EMTRICITABINE\TENOFOVIR DISOPROXIL FUMARATE
     Indication: HIV INFECTION
     Dosage: UNK
     Route: 048
     Dates: start: 201003, end: 201510
  2. TRUVADA [Suspect]
     Active Substance: EMTRICITABINE\TENOFOVIR DISOPROXIL FUMARATE
     Dosage: UNK
     Route: 065
     Dates: start: 201510, end: 201604
  3. MUPIROCIN. [Concomitant]
     Active Substance: MUPIROCIN
  4. CLOBETASOL PROPIONATE. [Concomitant]
     Active Substance: CLOBETASOL PROPIONATE
  5. ECONAZOLE NITRATE. [Concomitant]
     Active Substance: ECONAZOLE NITRATE
  6. PRILOSEC [Concomitant]
     Active Substance: OMEPRAZOLE MAGNESIUM
  7. DESOWEN [Concomitant]
     Active Substance: DESONIDE
  8. MIRTAZAPINE. [Suspect]
     Active Substance: MIRTAZAPINE
     Route: 065
  9. PIFELTRO [Concomitant]
     Active Substance: DORAVIRINE
  10. NICOTINE. [Concomitant]
     Active Substance: NICOTINE
  11. FLUNISOLIDE. [Concomitant]
     Active Substance: FLUNISOLIDE
  12. CLINDAMYCIN. [Concomitant]
     Active Substance: CLINDAMYCIN
  13. ERYTHROMYCIN. [Concomitant]
     Active Substance: ERYTHROMYCIN
  14. TIVICAY [Concomitant]
     Active Substance: DOLUTEGRAVIR SODIUM
  15. VIAGRA [Concomitant]
     Active Substance: SILDENAFIL CITRATE
  16. BACTROBAN (MUPIROCIN CALCIUM) [Concomitant]
  17. ACETAMINOPHEN (+) HYDROCODONE BITARTRATE [Concomitant]
     Active Substance: ACETAMINOPHEN\HYDROCODONE BITARTRATE
  18. CYCLOBENZAPRINE HYDROCHLORIDE. [Concomitant]
     Active Substance: CYCLOBENZAPRINE HYDROCHLORIDE
  19. CALCIPOTRIENE. [Concomitant]
     Active Substance: CALCIPOTRIENE
  20. POLYETHYLENE GLYCOL 3350 (+) POTASSIUM CHLORIDE (+) SODIUM CHLORIDE (+ [Concomitant]
  21. LAMIVUDINE. [Concomitant]
     Active Substance: LAMIVUDINE
  22. BENZONATATE. [Concomitant]
     Active Substance: BENZONATATE
  23. ATARAX [Concomitant]
     Active Substance: HYDROXYZINE HYDROCHLORIDE
  24. DOVONEX [Concomitant]
     Active Substance: CALCIPOTRIENE
  25. TRAZODONE HYDROCHLORIDE. [Concomitant]
     Active Substance: TRAZODONE HYDROCHLORIDE
  26. RANITIDINE. [Concomitant]
     Active Substance: RANITIDINE
  27. SULFAMETHOXAZOLE (+) TRIMETHOPRIM [Concomitant]
     Active Substance: SULFAMETHOXAZOLE\TRIMETHOPRIM
  28. CIPROFLOXACIN. [Concomitant]
     Active Substance: CIPROFLOXACIN
  29. CICLOPIROX. [Concomitant]
     Active Substance: CICLOPIROX
  30. FAMCICLOVIR. [Concomitant]
     Active Substance: FAMCICLOVIR
  31. CEFTRIAXONE. [Concomitant]
     Active Substance: CEFTRIAXONE
  32. ALBUTEROL SULFATE. [Concomitant]
     Active Substance: ALBUTEROL SULFATE
  33. SIMETHICONE (DIMETHICONE) [Concomitant]
     Active Substance: DIMETHICONE
  34. DESCOVY [Concomitant]
     Active Substance: EMTRICITABINE\TENOFOVIR ALAFENAMIDE FUMARATE
  35. PENICILLIN (UNSPECIFIED) [Concomitant]
     Active Substance: PENICILLIN
  36. DOXEPIN HYDROCHLORIDE. [Concomitant]
     Active Substance: DOXEPIN HYDROCHLORIDE
  37. HYDROXYZINE HYDROCHLORIDE. [Concomitant]
     Active Substance: HYDROXYZINE HYDROCHLORIDE
  38. ALLEGRA [Concomitant]
     Active Substance: FEXOFENADINE HYDROCHLORIDE
  39. IBUPROFEN. [Concomitant]
     Active Substance: IBUPROFEN
  40. ACYCLOVIR SODIUM. [Concomitant]
     Active Substance: ACYCLOVIR SODIUM
  41. DIAZEPAM. [Concomitant]
     Active Substance: DIAZEPAM
  42. CEPHALEXIN. [Concomitant]
     Active Substance: CEPHALEXIN
  43. VANCOMYCIN [Concomitant]
     Active Substance: VANCOMYCIN
  44. TRUVADA [Suspect]
     Active Substance: EMTRICITABINE\TENOFOVIR DISOPROXIL FUMARATE
     Indication: HIV INFECTION
     Dosage: UNK
     Route: 048
     Dates: start: 20051105, end: 2010
  45. KALETRA [Suspect]
     Active Substance: LOPINAVIR\RITONAVIR
     Indication: HIV INFECTION
     Route: 065
  46. PROAIR HFA [Concomitant]
     Active Substance: ALBUTEROL SULFATE
  47. KETOCONAZOLE. [Concomitant]
     Active Substance: KETOCONAZOLE
  48. OMEPRAZOLE. [Concomitant]
     Active Substance: OMEPRAZOLE
  49. PERCOCET [Concomitant]
     Active Substance: ACETAMINOPHEN\OXYCODONE HYDROCHLORIDE
  50. COLACE [Concomitant]
     Active Substance: DOCUSATE SODIUM
  51. REMERON [Concomitant]
     Active Substance: MIRTAZAPINE
  52. GENVOYA [Concomitant]
     Active Substance: COBICISTAT\ELVITEGRAVIR\EMTRICITABINE\TENOFOVIR ALAFENAMIDE FUMARATE
  53. FLUTICASONE. [Concomitant]
     Active Substance: FLUTICASONE
  54. ACETAMINOPHEN (+) OXYCODONE HYDROCHLORIDE [Concomitant]
     Active Substance: ACETAMINOPHEN\OXYCODONE HYDROCHLORIDE
  55. CHANTIX [Concomitant]
     Active Substance: VARENICLINE TARTRATE

REACTIONS (13)
  - Lipodystrophy acquired [Not Recovered/Not Resolved]
  - Anhedonia [Not Recovered/Not Resolved]
  - Emotional distress [Not Recovered/Not Resolved]
  - Myalgia [Unknown]
  - Weight increased [Unknown]
  - Economic problem [Not Recovered/Not Resolved]
  - Pain [Not Recovered/Not Resolved]
  - Hallucination, auditory [Not Recovered/Not Resolved]
  - Anxiety [Not Recovered/Not Resolved]
  - Depression [Not Recovered/Not Resolved]
  - Osteopenia [Not Recovered/Not Resolved]
  - Chronic kidney disease [Not Recovered/Not Resolved]
  - Multiple injuries [Unknown]

NARRATIVE: CASE EVENT DATE: 201603
